FAERS Safety Report 25106485 (Version 1)
Quarter: 2025Q1

REPORT INFORMATION
  Report Type: Spontaneous
  Country: US (occurrence: US)
  Receive Date: 20250321
  Receipt Date: 20250321
  Transmission Date: 20250409
  Serious: No
  Sender: MYLAN
  Company Number: US-MYLANLABS-2025M1021887

PATIENT
  Sex: Female

DRUGS (3)
  1. LATANOPROST [Suspect]
     Active Substance: LATANOPROST
     Indication: Glaucoma
  2. LATANOPROST [Suspect]
     Active Substance: LATANOPROST
  3. LATANOPROST [Suspect]
     Active Substance: LATANOPROST

REACTIONS (2)
  - Eye disorder [Recovering/Resolving]
  - Device delivery system issue [Unknown]
